FAERS Safety Report 11966525 (Version 1)
Quarter: 2016Q1

REPORT INFORMATION
  Report Type: Spontaneous
  Country: US (occurrence: None)
  Receive Date: 20160126
  Receipt Date: 20160126
  Transmission Date: 20160526
  Serious: No
  Sender: FDA-Public Use
  Company Number: None

PATIENT

DRUGS (1)
  1. ATORVASTATIN [Suspect]
     Active Substance: ATORVASTATIN

REACTIONS (6)
  - Cellulitis [None]
  - Overweight [None]
  - Exercise lack of [None]
  - Hypertension [None]
  - Fibromyalgia [None]
  - Blood glucose increased [None]
